FAERS Safety Report 20818225 (Version 1)
Quarter: 2022Q2

REPORT INFORMATION
  Report Type: Spontaneous
  Country: US (occurrence: None)
  Receive Date: 20220511
  Receipt Date: 20220511
  Transmission Date: 20220721
  Serious: Yes (Death)
  Sender: FDA-Public Use
  Company Number: None

PATIENT
  Age: 72 Year
  Sex: Female
  Weight: 67.13 kg

DRUGS (13)
  1. IBRANCE [Suspect]
     Active Substance: PALBOCICLIB
     Indication: Breast cancer
     Dosage: OTHER FREQUENCY : QDX21DAYS;?
     Route: 048
     Dates: start: 202203
  2. ANASTRAZOLE [Concomitant]
  3. ASPIRIN [Concomitant]
  4. FULVESTRANT [Concomitant]
  5. LETROZOLE [Concomitant]
  6. LISINOPRIL [Concomitant]
  7. NORCO [Concomitant]
  8. METFORMIN [Concomitant]
  9. NORCO [Concomitant]
     Active Substance: ACETAMINOPHEN\HYDROCODONE BITARTRATE
  10. NORVASC [Concomitant]
  11. PROCHLOPERAZINE [Concomitant]
  12. SIMETHICONE [Concomitant]
  13. SIMVASTATIN [Concomitant]

REACTIONS (1)
  - Death [None]

NARRATIVE: CASE EVENT DATE: 20220504
